FAERS Safety Report 19644544 (Version 1)
Quarter: 2021Q3

REPORT INFORMATION
  Report Type: Spontaneous
  Country: US (occurrence: US)
  Receive Date: 20210802
  Receipt Date: 20210802
  Transmission Date: 20211014
  Serious: No
  Sender: FDA-Public Use
  Company Number: US-GLENMARK PHARMACEUTICALS-2021GMK066651

PATIENT

DRUGS (1)
  1. ESTRADIOL VAGINAL TABLETS 10 MCG [Suspect]
     Active Substance: ESTRADIOL
     Indication: PRODUCT USED FOR UNKNOWN INDICATION
     Dosage: UNK, TWICE A WEEK
     Route: 065

REACTIONS (7)
  - Arthralgia [Unknown]
  - Joint swelling [Unknown]
  - Neck pain [Unknown]
  - Alopecia [Unknown]
  - Hypertrichosis [Unknown]
  - Oedema [Unknown]
  - Fluid retention [Unknown]
